FAERS Safety Report 7384468-7 (Version None)
Quarter: 2011Q1

REPORT INFORMATION
  Report Type: 
  Country: None (occurrence: None)
  Receive Date: 20110322
  Receipt Date: 20110317
  Transmission Date: 20110831
  Serious: Yes (Life-Threatening, Hospitalization)
  Sender: FDA-Public Use
  Company Number: 2010SP061885

PATIENT
  Age: 67 Year
  Sex: Female

DRUGS (10)
  1. TEMOZOLOMIDE [Suspect]
     Indication: OVARIAN CANCER
     Dosage: PO
     Route: 048
     Dates: start: 20101012, end: 20101016
  2. ABT-888 [Suspect]
     Indication: OVARIAN CANCER
     Dosage: 40 MG, PO
     Route: 048
     Dates: start: 20101012, end: 20101018
  3. CARBOPLATIN [Concomitant]
  4. DOXORUBICIN HYDROCHLORIDE [Suspect]
     Indication: OVARIAN CANCER
     Dosage: 90 MG, IV, 72 MG, IV
     Route: 042
     Dates: start: 20100803, end: 20100803
  5. DOXORUBICIN HYDROCHLORIDE [Suspect]
     Indication: OVARIAN CANCER
     Dosage: 90 MG, IV, 72 MG, IV
     Route: 042
     Dates: start: 20100831, end: 20100831
  6. DUCUSATE [Concomitant]
  7. TAXOL [Concomitant]
  8. LEVOTHYROXINE SODIUM [Concomitant]
  9. CANDESARTAN CILEXETIL [Concomitant]
  10. PYRIDOXINE HYDROCHLORIDE [Concomitant]

REACTIONS (10)
  - ENTEROCOCCUS TEST POSITIVE [None]
  - THROMBOCYTOPENIA [None]
  - FEBRILE NEUTROPENIA [None]
  - LEUKOPENIA [None]
  - RECTAL HAEMORRHAGE [None]
  - METASTASES TO GASTROINTESTINAL TRACT [None]
  - BACTERAEMIA [None]
  - BONE MARROW FAILURE [None]
  - URINARY TRACT INFECTION [None]
  - HYPOTENSION [None]
